FAERS Safety Report 4659295-1 (Version None)
Quarter: 2005Q2

REPORT INFORMATION
  Report Type: 
  Country: None (occurrence: None)
  Receive Date: 20050510
  Receipt Date: 20040503
  Transmission Date: 20051028
  Serious: Yes (Hospitalization)
  Sender: FDA-Public Use
  Company Number: 2004UW22673

PATIENT
  Age: 81 Year
  Sex: Female
  Weight: 48 kg

DRUGS (10)
  1. IRESSA [Suspect]
     Indication: PANCREATIC CARCINOMA METASTATIC
     Dosage: 250 MG QD PO
     Route: 048
     Dates: start: 20040917, end: 20041102
  2. DOCETAXEL [Suspect]
     Indication: PANCREATIC CARCINOMA METASTATIC
     Dosage: 40 MG IV
     Route: 042
     Dates: start: 20040917, end: 20041102
  3. SYNTHROID [Concomitant]
  4. MS CONTIN [Concomitant]
  5. DECADRON [Concomitant]
  6. MS CONTIN [Concomitant]
  7. ZANTAC [Concomitant]
  8. PREMARIN [Concomitant]
  9. PROMETRIUM [Concomitant]
  10. LIPRAM [Concomitant]

REACTIONS (2)
  - ABSCESS [None]
  - PNEUMATOSIS [None]
